FAERS Safety Report 17345190 (Version 1)
Quarter: 2020Q1

REPORT INFORMATION
  Report Type: Spontaneous
  Country: US (occurrence: US)
  Receive Date: 20200129
  Receipt Date: 20200129
  Transmission Date: 20200409
  Serious: No
  Sender: FDA-Public Use
  Company Number: US-ALLERGAN-1946001US

PATIENT
  Sex: Female

DRUGS (1)
  1. BOTOX COSMETIC [Suspect]
     Active Substance: ONABOTULINUMTOXINA
     Indication: LIP COSMETIC PROCEDURE
     Dosage: 10 UNITS, SINGLE
     Dates: start: 20191018, end: 20191018

REACTIONS (4)
  - Mastication disorder [Recovering/Resolving]
  - Off label use [Unknown]
  - Dysphagia [Recovering/Resolving]
  - Drug ineffective for unapproved indication [Unknown]

NARRATIVE: CASE EVENT DATE: 2019
